FAERS Safety Report 10248824 (Version 2)
Quarter: 2014Q3

REPORT INFORMATION
  Report Type: Spontaneous
  Country: DE (occurrence: DE)
  Receive Date: 20140620
  Receipt Date: 20140718
  Transmission Date: 20150326
  Serious: Yes (Hospitalization)
  Sender: FDA-Public Use
  Company Number: DE-AMGEN INC.-DEUSP2014045090

PATIENT
  Sex: Female
  Weight: 67 kg

DRUGS (7)
  1. PROLIA [Suspect]
     Active Substance: DENOSUMAB
     Indication: OSTEOPOROSIS
     Dosage: 60 MG, UNK
     Route: 065
     Dates: start: 20120807
  2. TOREM                              /01036501/ [Concomitant]
     Active Substance: TORSEMIDE
     Indication: CORONARY ARTERY DISEASE
     Dosage: UNK
     Dates: start: 20120710, end: 20140606
  3. SIMVASTATIN. [Concomitant]
     Active Substance: SIMVASTATIN
     Indication: HYPERCHOLESTEROLAEMIA
     Dosage: UNK
     Dates: start: 20120703, end: 20140606
  4. RAMIPRIL AL [Concomitant]
     Indication: HYPERTENSION
     Dosage: UNK
     Dates: start: 20120710, end: 20140606
  5. TILIDIN COMP [Concomitant]
     Active Substance: NALOXONE HYDROCHLORIDE\TILIDINE HYDROCHLORIDE
     Dosage: UNK
     Dates: start: 20121217, end: 20140606
  6. CLOPIDOGREL AL [Concomitant]
     Indication: CORONARY ARTERY DISEASE
     Dosage: 75 MG, UNK
     Dates: start: 20121217, end: 20140606
  7. PANTOPRAZOL AL [Concomitant]
     Indication: GASTROOESOPHAGEAL REFLUX DISEASE
     Dosage: UNK
     Dates: start: 20111130, end: 20140606

REACTIONS (1)
  - Chronic obstructive pulmonary disease [Recovered/Resolved]

NARRATIVE: CASE EVENT DATE: 20131010
